FAERS Safety Report 4574427-1 (Version None)
Quarter: 2005Q1

REPORT INFORMATION
  Report Type: 
  Country: None (occurrence: None)
  Receive Date: 20050208
  Receipt Date: 20050201
  Transmission Date: 20050727
  Serious: Yes (Hospitalization)
  Sender: FDA-Public Use
  Company Number: US-GLAXOSMITHKLINE-A0543479A

PATIENT
  Age: 48 Year
  Sex: Female
  Weight: 75 kg

DRUGS (5)
  1. BC HEADACHE POWDER [Suspect]
     Indication: MIGRAINE
     Route: 048
     Dates: start: 20010101, end: 20041102
  2. ELAVIL [Concomitant]
     Indication: HYSTERECTOMY
     Route: 048
  3. KLONOPIN [Concomitant]
     Indication: RESTLESS LEGS SYNDROME
     Route: 048
  4. RANITIDINE [Concomitant]
     Indication: GASTROOESOPHAGEAL REFLUX DISEASE
     Route: 048
  5. OXYCONTIN [Concomitant]
     Indication: FIBROMYALGIA
     Route: 048

REACTIONS (5)
  - EAR HAEMORRHAGE [None]
  - GASTRIC HAEMORRHAGE [None]
  - HAEMATEMESIS [None]
  - LOSS OF CONSCIOUSNESS [None]
  - MOUTH HAEMORRHAGE [None]
